FAERS Safety Report 8846149 (Version 2)
Quarter: 2012Q4

REPORT INFORMATION
  Report Type: 
  Country: US (occurrence: US)
  Receive Date: 20121017
  Receipt Date: 20121107
  Transmission Date: 20130627
  Serious: Yes (Other)
  Sender: FDA-Public Use
  Company Number: US-PFIZER INC-2012253895

PATIENT
  Sex: Female

DRUGS (2)
  1. DETROL LA [Suspect]
     Indication: URINARY FREQUENCY
     Dosage: UNK
     Dates: start: 20120102
  2. NEURONTIN [Suspect]
     Dosage: UNK
     Dates: start: 20120102

REACTIONS (2)
  - Road traffic accident [Unknown]
  - Rib fracture [Unknown]
